FAERS Safety Report 11926168 (Version 1)
Quarter: 2016Q1

REPORT INFORMATION
  Report Type: Report from Study
  Country: CA (occurrence: CA)
  Receive Date: 20160119
  Receipt Date: 20160119
  Transmission Date: 20160526
  Serious: Yes (Other)
  Sender: FDA-Public Use
  Company Number: CA-ROCHE-1631707

PATIENT
  Age: 56 Year
  Sex: Female
  Weight: 95.7 kg

DRUGS (12)
  1. ESBRIET [Suspect]
     Active Substance: PIRFENIDONE
     Route: 048
     Dates: start: 201510
  2. ESBRIET [Suspect]
     Active Substance: PIRFENIDONE
     Route: 048
     Dates: start: 20150404
  3. VITAMIN D3 [Concomitant]
     Active Substance: CHOLECALCIFEROL
  4. VENTOLIN [Concomitant]
     Active Substance: ALBUTEROL SULFATE
  5. HYDROCHLOROTHIAZIDE. [Concomitant]
     Active Substance: HYDROCHLOROTHIAZIDE
     Route: 065
  6. SUBLINOX [Concomitant]
     Active Substance: ZOLPIDEM TARTRATE
  7. VITAMIN E [Concomitant]
     Active Substance: .ALPHA.-TOCOPHEROL
  8. FISH OIL [Concomitant]
     Active Substance: FISH OIL
  9. ATORVASTATIN [Concomitant]
     Active Substance: ATORVASTATIN
  10. ESBRIET [Suspect]
     Active Substance: PIRFENIDONE
     Indication: IDIOPATHIC PULMONARY FIBROSIS
     Route: 048
     Dates: start: 20150328
  11. ESBRIET [Suspect]
     Active Substance: PIRFENIDONE
     Route: 048
     Dates: start: 20150411, end: 201510
  12. PANTOPRAZOLE [Concomitant]
     Active Substance: PANTOPRAZOLE SODIUM

REACTIONS (15)
  - Cough [Not Recovered/Not Resolved]
  - Crepitations [Unknown]
  - Pruritus [Unknown]
  - Drug dose omission [Unknown]
  - Oropharyngeal pain [Unknown]
  - Wheezing [Unknown]
  - Chest discomfort [Unknown]
  - Dyspnoea [Unknown]
  - Chest pain [Unknown]
  - Mass [Unknown]
  - Upper-airway cough syndrome [Unknown]
  - Clubbing [Unknown]
  - Oedema peripheral [Unknown]
  - Fatigue [Unknown]
  - Cough [Unknown]

NARRATIVE: CASE EVENT DATE: 20150903
